FAERS Safety Report 6972998-9 (Version None)
Quarter: 2010Q3

REPORT INFORMATION
  Report Type: 
  Country: None (occurrence: None)
  Receive Date: 20100907
  Receipt Date: 20100825
  Transmission Date: 20110219
  Serious: Yes (Hospitalization, Other)
  Sender: FDA-Public Use
  Company Number: 2010SP046422

PATIENT
  Age: 35 Year
  Sex: Female

DRUGS (1)
  1. IMPLANON [Suspect]
     Indication: CONTRACEPTION
     Dosage: 68 MG; SBDE

REACTIONS (5)
  - ANGIOPATHY [None]
  - CARDIAC ENZYMES INCREASED [None]
  - CHEST PAIN [None]
  - UPPER LIMB FRACTURE [None]
  - VEIN DISORDER [None]
